FAERS Safety Report 8774128 (Version 3)
Quarter: 2012Q4

REPORT INFORMATION
  Report Type: 
  Country: US (occurrence: US)
  Receive Date: 20120907
  Receipt Date: 20121205
  Transmission Date: 20130627
  Serious: Yes (Hospitalization)
  Sender: FDA-Public Use
  Company Number: US-BAYER-2012-090648

PATIENT
  Age: 44 Year
  Sex: Female
  Weight: 90.7 kg

DRUGS (10)
  1. YAZ [Suspect]
     Indication: IRREGULAR PERIODS
     Dosage: UNK
     Dates: start: 201005, end: 201109
  2. YAZ [Suspect]
     Indication: BIRTH CONTROL
  3. YAZ [Suspect]
     Indication: MOOD DISORDER NOS
  4. ALLEGRA-D [Concomitant]
     Dosage: UNK
     Route: 048
     Dates: start: 20110816
  5. SERTRALINE [Concomitant]
  6. VALTREX [Concomitant]
  7. PRILOSEC [Concomitant]
  8. MELOXICAM [Concomitant]
     Dosage: 7.5 mg, UNK
     Route: 048
     Dates: start: 20110706, end: 20110813
  9. SERTRALINE HYDROCHLORIDE [Concomitant]
     Dosage: 50 mg, UNK
     Route: 048
     Dates: start: 20110813, end: 20120605
  10. VALACICLOVIR HYDROCHLORIDE [Concomitant]
     Dosage: 500 mg, UNK
     Dates: start: 20110719, end: 20110913

REACTIONS (11)
  - Pulmonary embolism [Recovered/Resolved]
  - Deep vein thrombosis [None]
  - Post thrombotic syndrome [None]
  - Dyspnoea [Recovered/Resolved]
  - Pain [None]
  - Pain [Recovered/Resolved]
  - Fear of disease [None]
  - Injury [None]
  - Oedema peripheral [None]
  - Pain in extremity [None]
  - Off label use [None]
